FAERS Safety Report 18563957 (Version 1)
Quarter: 2020Q4

REPORT INFORMATION
  Report Type: Spontaneous
  Country: CN (occurrence: CN)
  Receive Date: 20201201
  Receipt Date: 20201201
  Transmission Date: 20210114
  Serious: Yes (Other)
  Sender: FDA-Public Use
  Company Number: CN-ROCHE-2723734

PATIENT
  Age: 36 Year
  Sex: Male
  Weight: 73 kg

DRUGS (2)
  1. XELODA [Suspect]
     Active Substance: CAPECITABINE
     Indication: COLON CANCER
     Route: 048
     Dates: start: 20200608
  2. XELODA [Suspect]
     Active Substance: CAPECITABINE
     Dosage: 3 TABLETS IN THE MORNING AND 4 TABLETS IN THE EVENING
     Route: 048
     Dates: start: 20200623

REACTIONS (3)
  - Hyperbilirubinaemia [Recovering/Resolving]
  - Liver injury [Recovering/Resolving]
  - Blood uric acid increased [Recovering/Resolving]

NARRATIVE: CASE EVENT DATE: 20200622
